FAERS Safety Report 12456048 (Version 1)
Quarter: 2016Q2

REPORT INFORMATION
  Report Type: Spontaneous
  Country: EG (occurrence: EG)
  Receive Date: 20160610
  Receipt Date: 20160610
  Transmission Date: 20160815
  Serious: Yes (Other)
  Sender: FDA-Public Use
  Company Number: EG-CONCORDIA PHARMACEUTICALS INC.-CO-PL-EG-2015-035

PATIENT
  Age: 28 Year
  Sex: Female

DRUGS (2)
  1. PREDNISOLONE. [Suspect]
     Active Substance: PREDNISOLONE
     Indication: SYSTEMIC LUPUS ERYTHEMATOSUS
     Route: 048
  2. HYDROXYCHLOROQUINE SULFATE. [Suspect]
     Active Substance: HYDROXYCHLOROQUINE SULFATE
     Indication: SYSTEMIC LUPUS ERYTHEMATOSUS
     Route: 048

REACTIONS (7)
  - Hepatitis toxic [Recovered/Resolved]
  - Diarrhoea [None]
  - Aspartate aminotransferase increased [None]
  - Acute abdomen [None]
  - Nausea [None]
  - Vomiting [None]
  - Alanine aminotransferase increased [None]
